FAERS Safety Report 22125994 (Version 1)
Quarter: 2023Q1

REPORT INFORMATION
  Report Type: Spontaneous
  Country: US (occurrence: US)
  Receive Date: 20230322
  Receipt Date: 20230322
  Transmission Date: 20230418
  Serious: No
  Sender: FDA-Public Use
  Company Number: US-ALLERGAN-2214537US

PATIENT
  Age: 71 Year
  Sex: Female

DRUGS (4)
  1. LUMIGAN [Suspect]
     Active Substance: BIMATOPROST
     Indication: Glaucoma
     Dosage: 2 GTT, QHS
     Route: 047
     Dates: end: 20220427
  2. ATORVASTATIN [Concomitant]
     Active Substance: ATORVASTATIN
     Indication: Osteoporosis
     Dosage: UNK, Q WEEK
     Route: 048
  3. HYDROCHLOROTHIAZIDE [Concomitant]
     Active Substance: HYDROCHLOROTHIAZIDE
     Indication: Blood pressure increased
     Dosage: 12.5 MG, QD
     Route: 048
  4. LISINOPRIL [Concomitant]
     Active Substance: LISINOPRIL
     Indication: Blood pressure increased
     Dosage: 20 MG, QD
     Route: 048

REACTIONS (2)
  - Expired product administered [Unknown]
  - Eye irritation [Recovered/Resolved]

NARRATIVE: CASE EVENT DATE: 20220401
